FAERS Safety Report 25121233 (Version 1)
Quarter: 2025Q1

REPORT INFORMATION
  Report Type: Spontaneous
  Country: US (occurrence: US)
  Receive Date: 20250326
  Receipt Date: 20250326
  Transmission Date: 20250408
  Serious: No
  Sender: SANOFI AVENTIS
  Company Number: US-SA-2025SA086310

PATIENT
  Age: 18 Year
  Sex: Female

DRUGS (17)
  1. DUPIXENT [Suspect]
     Active Substance: DUPILUMAB
     Indication: Dermatitis atopic
     Route: 058
     Dates: start: 20230718
  2. NUTRAFOL [Concomitant]
  3. ZYRTEC [Concomitant]
     Active Substance: CETIRIZINE HYDROCHLORIDE
  4. ADVAIR HFA [Concomitant]
     Active Substance: FLUTICASONE PROPIONATE\SALMETEROL XINAFOATE
  5. NUCALA [Concomitant]
     Active Substance: MEPOLIZUMAB
  6. RINVOQ [Concomitant]
     Active Substance: UPADACITINIB
  7. PREDNISONE [Concomitant]
     Active Substance: PREDNISONE
  8. ALBUTEROL SULFATE [Concomitant]
     Active Substance: ALBUTEROL SULFATE
  9. FASENRA [Concomitant]
     Active Substance: BENRALIZUMAB
  10. DESLORATADINE [Concomitant]
     Active Substance: DESLORATADINE
  11. HADLIMA [Concomitant]
     Active Substance: ADALIMUMAB-BWWD
  12. SINGULAIR [Concomitant]
     Active Substance: MONTELUKAST SODIUM
  13. HUMIRA [Concomitant]
     Active Substance: ADALIMUMAB
  14. FLUTICASONE [Concomitant]
     Active Substance: FLUTICASONE
  15. CYCLOSPORINE [Concomitant]
     Active Substance: CYCLOSPORINE
  16. DOXYCYCLINE [Concomitant]
     Active Substance: DOXYCYCLINE
  17. CEPHALEXIN [Concomitant]
     Active Substance: CEPHALEXIN

REACTIONS (1)
  - Drug ineffective [Unknown]
